FAERS Safety Report 14282400 (Version 3)
Quarter: 2020Q2

REPORT INFORMATION
  Report Type: Report from Study
  Country: US (occurrence: US)
  Receive Date: 20171213
  Receipt Date: 20200518
  Transmission Date: 20200713
  Serious: Yes (Other)
  Sender: FDA-Public Use
  Company Number: US-BIOGEN-2017BI00495703

PATIENT
  Age: 62 Year
  Sex: Female

DRUGS (1)
  1. TYSABRI [Suspect]
     Active Substance: NATALIZUMAB
     Indication: MULTIPLE SCLEROSIS
     Route: 050
     Dates: start: 20091013

REACTIONS (4)
  - Hernia [Unknown]
  - Benign breast neoplasm [Not Recovered/Not Resolved]
  - Lobular breast carcinoma in situ [Not Recovered/Not Resolved]
  - Colon cancer [Unknown]

NARRATIVE: CASE EVENT DATE: 20180901
